FAERS Safety Report 6095676-X (Version None)
Quarter: 2009Q1

REPORT INFORMATION
  Report Type: 
  Country: None (occurrence: None)
  Receive Date: 20090227
  Receipt Date: 20080521
  Transmission Date: 20090719
  Serious: No
  Sender: FDA-Public Use
  Company Number: A0729027A

PATIENT
  Age: 17 Year
  Sex: Female

DRUGS (2)
  1. LAMICTAL [Suspect]
     Indication: DEPRESSION
     Dosage: 100MG PER DAY
     Route: 048
     Dates: start: 20080408, end: 20080518
  2. ZOLOFT [Concomitant]
     Dates: start: 20060101

REACTIONS (3)
  - PRURITUS [None]
  - PRURITUS GENERALISED [None]
  - RASH [None]
